FAERS Safety Report 8330247-3 (Version None)
Quarter: 2012Q2

REPORT INFORMATION
  Report Type: 
  Country: None (occurrence: None)
  Receive Date: 20120430
  Receipt Date: 20120423
  Transmission Date: 20120825
  Serious: Yes (Hospitalization)
  Sender: FDA-Public Use
  Company Number: 2012SP005090

PATIENT
  Sex: Female
  Weight: 92 kg

DRUGS (8)
  1. NUVARING [Suspect]
     Indication: CONTRACEPTION
     Dosage: QM;VAG
     Route: 067
     Dates: start: 20120329
  2. NUVARING [Suspect]
     Indication: CONTRACEPTION
     Dosage: QM;VAG
     Route: 067
     Dates: start: 20110801, end: 20120226
  3. LANSOPRAZOLE [Concomitant]
  4. CLARIMAX [Concomitant]
  5. BURTEN [Concomitant]
  6. IDON [Concomitant]
  7. OMEPRAZOLE [Concomitant]
  8. AMOXICILLIN [Concomitant]

REACTIONS (9)
  - BLOOD GLUCOSE ABNORMAL [None]
  - ABNORMAL WITHDRAWAL BLEEDING [None]
  - INAPPROPRIATE SCHEDULE OF DRUG ADMINISTRATION [None]
  - WRONG TECHNIQUE IN DRUG USAGE PROCESS [None]
  - HYPOMENORRHOEA [None]
  - INSULIN RESISTANCE SYNDROME [None]
  - HEPATIC STEATOSIS [None]
  - INCORRECT DRUG ADMINISTRATION DURATION [None]
  - OVERWEIGHT [None]
